FAERS Safety Report 10087790 (Version 1)
Quarter: 2014Q2

REPORT INFORMATION
  Report Type: Spontaneous
  Country: US (occurrence: US)
  Receive Date: 20140418
  Receipt Date: 20140418
  Transmission Date: 20141212
  Serious: Yes (Other)
  Sender: FDA-Public Use
  Company Number: US-NAPPMUNDI-USA-2014-0110902

PATIENT
  Sex: Male

DRUGS (2)
  1. OXYCODONE HYDROCHLORIDE (SIMILAR TO NDA 22-272) [Suspect]
     Indication: PAIN
  2. METHADONE [Suspect]
     Indication: PAIN

REACTIONS (3)
  - Drug dependence [Recovering/Resolving]
  - Feeling abnormal [Unknown]
  - Memory impairment [Unknown]
